FAERS Safety Report 8594468 (Version 3)
Quarter: 2012Q4

REPORT INFORMATION
  Report Type: 
  Country: US (occurrence: US)
  Receive Date: 20120604
  Receipt Date: 20121108
  Transmission Date: 20130627
  Serious: Yes (Hospitalization)
  Sender: FDA-Public Use
  Company Number: US-ACTELION-A-US2012-66310

PATIENT
  Age: 65 Year
  Sex: Female
  Weight: 160 kg

DRUGS (18)
  1. VELETRI [Suspect]
     Indication: PULMONARY ARTERIAL HYPERTENSION
     Dosage: 24 ng/kg, per min
     Route: 042
     Dates: start: 20110902
  2. TRACLEER [Suspect]
     Indication: PULMONARY ARTERIAL HYPERTENSION
     Dosage: 125 mg, bid
     Route: 048
     Dates: start: 20040927
  3. SILDENAFIL [Concomitant]
  4. COUMADIN [Concomitant]
  5. VANCOMYCIN [Concomitant]
  6. TYLENOL [Concomitant]
  7. ZYLOPRIM [Concomitant]
  8. ZYRTEC [Concomitant]
  9. FERROUS SULFATE [Concomitant]
  10. LASIX [Concomitant]
  11. NEURONTIN [Concomitant]
  12. NORCO [Concomitant]
  13. PLAQUENIL [Concomitant]
  14. LEVOTHYROXINE [Concomitant]
  15. ZAROXOLYN [Concomitant]
  16. POTASSIUM CHLORIDE [Concomitant]
  17. SALSALATE [Concomitant]
  18. SPIRONOLACTONE [Concomitant]

REACTIONS (12)
  - Pneumonia [Unknown]
  - Loss of consciousness [Recovered/Resolved]
  - Confusional state [Recovered/Resolved]
  - Mental status changes [Recovered/Resolved]
  - Cough [Unknown]
  - Fall [Recovered/Resolved]
  - Skin ulcer [Recovered/Resolved]
  - Clostridium difficile colitis [Recovered/Resolved]
  - Faecal incontinence [Recovered/Resolved]
  - Venous pressure jugular increased [Unknown]
  - Chest discomfort [Unknown]
  - Leukocytosis [Unknown]
